FAERS Safety Report 22101070 (Version 2)
Quarter: 2024Q2

REPORT INFORMATION
  Report Type: Other
  Country: US (occurrence: None)
  Receive Date: 20230316
  Receipt Date: 20240530
  Transmission Date: 20240716
  Serious: Yes (Hospitalization, Other)
  Sender: FDA-Public Use
  Company Number: US-ROCHE-3274539

PATIENT
  Age: 11 Year
  Sex: Male
  Weight: 42.4 kg

DRUGS (9)
  1. EVRYSDI [Suspect]
     Active Substance: RISDIPLAM
     Indication: Spinal muscular atrophy
     Route: 048
     Dates: start: 20220916
  2. EVRYSDI [Suspect]
     Active Substance: RISDIPLAM
     Route: 048
     Dates: start: 20200915
  3. CETIRIZINE [Concomitant]
     Active Substance: CETIRIZINE HYDROCHLORIDE
     Dosage: 10 MG CHEWABLE TABLET DAILY
  4. LACTULOSE [Concomitant]
     Active Substance: LACTULOSE
     Dosage: 20 GM/30 ML SOLUTION , TAKE 20 G BY MOUTH DAILY
  5. LORATADINE [Concomitant]
     Active Substance: LORATADINE
     Dosage: 10 MG TABLET , TAKE 10 MG BY MOUTH DAILY
  6. SODIUM PHOSPHATE [Concomitant]
     Active Substance: SODIUM PHOSPHATE
     Dosage: 3.5-9.5 GM/59 ML ENEMA
  7. SODIUM [Concomitant]
     Active Substance: SODIUM
  8. POTASSIUM [Concomitant]
     Active Substance: POTASSIUM
  9. CHLORIDE ION [Concomitant]
     Active Substance: CHLORIDE ION

REACTIONS (6)
  - Urinary tract infection [Not Recovered/Not Resolved]
  - Nephrolithiasis [Not Recovered/Not Resolved]
  - Sleep disorder [Unknown]
  - Dysphagia [Unknown]
  - Wheezing [Unknown]
  - Seizure [Not Recovered/Not Resolved]

NARRATIVE: CASE EVENT DATE: 20220524
